FAERS Safety Report 17262626 (Version 1)
Quarter: 2019Q4

REPORT INFORMATION
  Report Type: Spontaneous
  Country: US (occurrence: US)
  Receive Date: 20191218
  Receipt Date: 20191218
  Transmission Date: 20200122
  Serious: Yes (Other)
  Sender: FDA-Public Use
  Company Number: None

PATIENT
  Age: 60 Year
  Sex: Female
  Weight: 86.18 kg

DRUGS (8)
  1. LOSARTAN POTASSIUM 50MG [Suspect]
     Active Substance: LOSARTAN POTASSIUM
     Indication: BLOOD PRESSURE MANAGEMENT
     Dosage: ?          QUANTITY:1 DF DOSAGE FORM;?
     Route: 048
     Dates: start: 20180611, end: 20191201
  2. FLAXSEED [Concomitant]
     Active Substance: FLAX SEED
  3. KRILL OIL [Concomitant]
     Active Substance: DIETARY SUPPLEMENT\KRILL OIL
  4. VITAMIN D3 [Concomitant]
     Active Substance: CHOLECALCIFEROL
  5. OMEPRAZOLE. [Concomitant]
     Active Substance: OMEPRAZOLE
  6. LISINOPRIL. [Concomitant]
     Active Substance: LISINOPRIL
  7. PROBIOTIC [Concomitant]
     Active Substance: PROBIOTICS NOS
  8. UBIQUNOL [Concomitant]

REACTIONS (14)
  - Migraine with aura [None]
  - Malaise [None]
  - Myalgia [None]
  - Rash pruritic [None]
  - Arthralgia [None]
  - Nausea [None]
  - Renal impairment [None]
  - Dehydration [None]
  - Blood pressure abnormal [None]
  - Fatigue [None]
  - Rash [None]
  - Back pain [None]
  - Vision blurred [None]
  - Tinnitus [None]

NARRATIVE: CASE EVENT DATE: 20191125
